FAERS Safety Report 16653967 (Version 1)
Quarter: 2019Q3

REPORT INFORMATION
  Report Type: Spontaneous
  Country: US (occurrence: US)
  Receive Date: 20190731
  Receipt Date: 20190731
  Transmission Date: 20191004
  Serious: Yes (Other)
  Sender: FDA-Public Use
  Company Number: US-SHIRE-US201924269

PATIENT
  Age: 54 Year
  Sex: Male

DRUGS (3)
  1. FACTOR VIIA, RECOMBINANT [Concomitant]
     Active Substance: COAGULATION FACTOR VIIA RECOMBINANT HUMAN
     Indication: HAEMORRHAGE
     Dosage: 90 MICROGRAM, 1X/DAY:QD
     Route: 065
  2. FACTOR VIII RECOMBINANT [Concomitant]
     Active Substance: ANTIHEMOPHILIC FACTOR, HUMAN RECOMBINANT
     Indication: HAEMORRHAGE
     Dosage: 100 INTERNATIONAL UNIT/KILOGRAM, 1X/DAY:QD
     Route: 065
  3. FACTOR VIII INHIBITOR BYPASSING FRACTION [Suspect]
     Active Substance: ANTI-INHIBITOR COAGULANT COMPLEX
     Indication: HAEMORRHAGE
     Dosage: 85 INTERNATIONAL UNIT/KILOGRAM, 1X/DAY:QD
     Route: 065

REACTIONS (1)
  - Drug ineffective [Unknown]
